FAERS Safety Report 22125370 (Version 1)
Quarter: 2023Q1

REPORT INFORMATION
  Report Type: Spontaneous
  Country: CN (occurrence: None)
  Receive Date: 20230322
  Receipt Date: 20230322
  Transmission Date: 20230417
  Serious: Yes (Hospitalization)
  Sender: FDA-Public Use
  Company Number: 2023A051978

PATIENT
  Age: 61 Year
  Sex: Male
  Weight: 70 kg

DRUGS (2)
  1. IMFINZI [Suspect]
     Active Substance: DURVALUMAB
     Indication: Non-small cell lung cancer
     Dosage: SPECIFICATION: 500MG/VIAL, 1000 MG, ABOUT ONCE EVERY 21 DAYS
     Route: 042
     Dates: start: 20200718, end: 20200810
  2. IMFINZI [Suspect]
     Active Substance: DURVALUMAB
     Indication: Lung neoplasm malignant
     Dosage: SPECIFICATION: 500MG/VIAL, 1000 MG, ABOUT ONCE EVERY 21 DAYS
     Route: 042
     Dates: start: 20200718, end: 20200810

REACTIONS (1)
  - COVID-19 [Recovered/Resolved]

NARRATIVE: CASE EVENT DATE: 20221201
